FAERS Safety Report 12502260 (Version 1)
Quarter: 2016Q2

REPORT INFORMATION
  Report Type: Spontaneous
  Country: IT (occurrence: IT)
  Receive Date: 20160627
  Receipt Date: 20160627
  Transmission Date: 20160815
  Serious: Yes (Hospitalization, Other)
  Sender: FDA-Public Use
  Company Number: IT-MYLANLABS-2016M1026763

PATIENT

DRUGS (1)
  1. QUETIAPINE. [Suspect]
     Active Substance: QUETIAPINE
     Indication: PRODUCT USED FOR UNKNOWN INDICATION
     Dosage: 1000 MG TOTAL
     Route: 048
     Dates: start: 20160514, end: 20160514

REACTIONS (6)
  - Intentional self-injury [Unknown]
  - Toxicity to various agents [Unknown]
  - Wrong patient received medication [Unknown]
  - Confusional state [Unknown]
  - Drug abuse [Unknown]
  - Intentional overdose [Unknown]

NARRATIVE: CASE EVENT DATE: 20160514
